FAERS Safety Report 5542076-4 (Version None)
Quarter: 2007Q4

REPORT INFORMATION
  Report Type: 
  Country: None (occurrence: None)
  Receive Date: 20071210
  Receipt Date: 20061214
  Transmission Date: 20080405
  Serious: No
  Sender: FDA-Public Use
  Company Number: US-AMGEN-US195563

PATIENT
  Sex: Female
  Weight: 73 kg

DRUGS (6)
  1. ENBREL [Suspect]
     Indication: RHEUMATOID ARTHRITIS
     Route: 058
     Dates: start: 20060901
  2. PLAQUENIL [Concomitant]
     Route: 065
     Dates: start: 20040101
  3. NEURONTIN [Concomitant]
     Route: 065
     Dates: start: 20030101
  4. AMITRIPTLINE HCL [Concomitant]
     Route: 065
     Dates: start: 20030101
  5. SOMA [Concomitant]
     Route: 065
     Dates: start: 20050101
  6. DARVOCET [Concomitant]
     Route: 065
     Dates: start: 20040101

REACTIONS (1)
  - INJECTION SITE REACTION [None]
